FAERS Safety Report 9045211 (Version 1)
Quarter: 2013Q1

REPORT INFORMATION
  Report Type: Report from Study
  Country: US (occurrence: US)
  Receive Date: 20130130
  Receipt Date: 20130130
  Transmission Date: 20140127
  Serious: No
  Sender: FDA-Public Use
  Company Number: US-ABBOTT-12P-163-0972905-00

PATIENT
  Age: 46 None
  Sex: 0

DRUGS (3)
  1. HUMIRA 40 MG/0.8 ML PEN [Suspect]
     Indication: ANKYLOSING SPONDYLITIS
     Dates: start: 2009
  2. ALEVE [Concomitant]
     Indication: ANKYLOSING SPONDYLITIS
  3. MELOXICAM [Concomitant]
     Indication: ANKYLOSING SPONDYLITIS

REACTIONS (2)
  - Injection site reaction [Recovered/Resolved]
  - Device malfunction [Recovered/Resolved]
